FAERS Safety Report 13593040 (Version 2)
Quarter: 2018Q3

REPORT INFORMATION
  Report Type: Spontaneous
  Country: JP (occurrence: JP)
  Receive Date: 20170530
  Receipt Date: 20180713
  Transmission Date: 20181010
  Serious: Yes (Other)
  Sender: FDA-Public Use
  Company Number: JP-BAYER-2017-096734

PATIENT
  Weight: 1.3 kg

DRUGS (1)
  1. BAYASPIRIN 100 MG [Suspect]
     Active Substance: ASPIRIN
     Dosage: UNK
     Route: 064
     Dates: start: 2011

REACTIONS (4)
  - Low birth weight baby [None]
  - Premature baby [None]
  - Foetal exposure during pregnancy [Recovered/Resolved]
  - Foetal growth restriction [None]
